FAERS Safety Report 7682647 (Version 2)
Quarter: 2014Q2

REPORT INFORMATION
  Report Type: Spontaneous
  Country: US (occurrence: US)
  Receive Date: 20101124
  Receipt Date: 20140523
  Transmission Date: 20141212
  Serious: Yes (Other)
  Sender: FDA-Public Use
  Company Number: US-JNJFOC-20101105059

PATIENT
  Age: 42 Year
  Sex: Female
  Weight: 120.2 kg

DRUGS (13)
  1. REMICADE [Suspect]
     Indication: FISTULA
     Route: 042
     Dates: start: 200909
  2. REMICADE [Suspect]
     Indication: COLITIS ULCERATIVE
     Route: 042
     Dates: start: 200909
  3. REMICADE [Suspect]
     Indication: CROHN^S DISEASE
     Route: 042
     Dates: start: 200909
  4. NEXIUM [Concomitant]
     Indication: DYSPEPSIA
     Route: 048
  5. PRED FORTE [Concomitant]
     Indication: UVEITIS
     Dates: start: 2000
  6. SYSTANE [Concomitant]
     Indication: UVEITIS
     Dates: start: 2008
  7. RESTASIS [Concomitant]
     Indication: DRY EYE
  8. PERCOCET [Concomitant]
     Indication: PAIN
     Route: 048
  9. PERCOCET [Concomitant]
     Indication: PAIN
     Route: 048
  10. VICODIN [Concomitant]
     Indication: PAIN
     Route: 048
  11. DARVOCET [Concomitant]
     Indication: PAIN
     Route: 048
  12. COMPAZINE [Concomitant]
     Indication: NAUSEA
     Route: 048
  13. BENTYL [Concomitant]
     Indication: MUSCLE SPASMS
     Route: 048

REACTIONS (2)
  - Fibromyalgia [Not Recovered/Not Resolved]
  - Neuropathy peripheral [Not Recovered/Not Resolved]
